FAERS Safety Report 4602467-2 (Version None)
Quarter: 2005Q1

REPORT INFORMATION
  Report Type: 
  Country: None (occurrence: None)
  Receive Date: 20050307
  Receipt Date: 20050214
  Transmission Date: 20050727
  Serious: Yes (Other)
  Sender: FDA-Public Use
  Company Number: 2004241005US

PATIENT
  Sex: Female
  Weight: 68.0396 kg

DRUGS (5)
  1. BEXTRA [Suspect]
     Indication: ARTHRITIS
     Dosage: 1 OR 2 (10 MG, 1 D)
  2. ATENOLOL [Concomitant]
  3. RAMIPRIL [Concomitant]
  4. HYDROCHLOROTHIAZIDE [Concomitant]
  5. LEVOTHYROXINE SODIUM [Concomitant]

REACTIONS (12)
  - ABDOMINAL PAIN UPPER [None]
  - CARDIAC DISORDER [None]
  - CONFUSIONAL STATE [None]
  - FAECES DISCOLOURED [None]
  - FEELING ABNORMAL [None]
  - GASTRIC DISORDER [None]
  - HAEMORRHAGE [None]
  - MEMORY IMPAIRMENT [None]
  - PALPITATIONS [None]
  - PARAESTHESIA [None]
  - RASH [None]
  - SLEEP DISORDER [None]
